FAERS Safety Report 9282102 (Version 2)
Quarter: 2013Q2

REPORT INFORMATION
  Report Type: Report from Study
  Country: IT (occurrence: IT)
  Receive Date: 20130510
  Receipt Date: 20130522
  Transmission Date: 20140414
  Serious: Yes (Other)
  Sender: FDA-Public Use
  Company Number: IT-ROCHE-1081690

PATIENT
  Age: 54 Year
  Sex: Male

DRUGS (5)
  1. VEMURAFENIB [Suspect]
     Indication: PAPILLARY THYROID CANCER
     Route: 065
     Dates: start: 20120525
  2. LEVOTIROXINA [Concomitant]
     Indication: THYROID CANCER
     Route: 048
     Dates: start: 200810
  3. ESOMEPRAZOLE [Concomitant]
     Indication: GASTROOESOPHAGEAL REFLUX DISEASE
     Route: 048
     Dates: start: 2004
  4. ESOMEPRAZOLE [Concomitant]
     Route: 048
     Dates: start: 201204, end: 20130123
  5. ESOMEPRAZOLE [Concomitant]
     Route: 065
     Dates: start: 20130123

REACTIONS (8)
  - Vocal cord disorder [Not Recovered/Not Resolved]
  - Skin papilloma [Recovered/Resolved]
  - Aspartate aminotransferase increased [Not Recovered/Not Resolved]
  - Alanine aminotransferase increased [Not Recovered/Not Resolved]
  - Gamma-glutamyltransferase increased [Not Recovered/Not Resolved]
  - Hyperkeratosis [Not Recovered/Not Resolved]
  - Actinic keratosis [Recovered/Resolved]
  - Lichenoid keratosis [Recovered/Resolved]
